FAERS Safety Report 17815950 (Version 1)
Quarter: 2020Q2

REPORT INFORMATION
  Report Type: Spontaneous
  Country: IT (occurrence: IT)
  Receive Date: 20200522
  Receipt Date: 20200522
  Transmission Date: 20200714
  Serious: Yes (Other)
  Sender: FDA-Public Use
  Company Number: IT-009507513-2005ITA005419

PATIENT
  Age: 49 Year

DRUGS (2)
  1. ZINFORO [Suspect]
     Active Substance: CEFTAROLINE FOSAMIL
     Dosage: UNK
  2. ZERBAXA [Suspect]
     Active Substance: CEFTOLOZANE SULFATE\TAZOBACTAM SODIUM
     Dosage: UNK

REACTIONS (1)
  - Thrombocytopenia [Unknown]
